FAERS Safety Report 4439641-4 (Version None)
Quarter: 2004Q3

REPORT INFORMATION
  Report Type: 
  Country: None (occurrence: None)
  Receive Date: 20040831
  Receipt Date: 20040831
  Transmission Date: 20050211
  Serious: Yes (Hospitalization)
  Sender: FDA-Public Use
  Company Number: None

PATIENT
  Age: 61 Year
  Sex: Female
  Weight: 61.69 kg

DRUGS (1)
  1. ZYDIS [Suspect]
     Indication: SCHIZOAFFECTIVE DISORDER
     Dosage: 1 DAILY ORAL
     Route: 048
     Dates: start: 20031118, end: 20031124

REACTIONS (1)
  - URINARY INCONTINENCE [None]
